FAERS Safety Report 7451765 (Version 2)
Quarter: 2013Q3

REPORT INFORMATION
  Report Type: Spontaneous
  Country: LB (occurrence: LB)
  Receive Date: 20100702
  Receipt Date: 20130829
  Transmission Date: 20140515
  Serious: Yes (Other)
  Sender: FDA-Public Use
  Company Number: US-RANBAXY-2010US-35080

PATIENT
  Age: 11 Year
  Sex: Male

DRUGS (3)
  1. SERTRALINE [Suspect]
     Indication: OBSESSIVE-COMPULSIVE DISORDER
     Dosage: 50 MG/DAY
     Route: 065
  2. SERTRALINE [Suspect]
     Indication: OBSESSIVE-COMPULSIVE DISORDER
     Dosage: 75 MG/ DAILY
     Route: 065
  3. METHYLPHENIDATE [Concomitant]
     Indication: PRODUCT USED FOR UNKNOWN INDICATION
     Dosage: 45 MG/DAILY
     Route: 065

REACTIONS (2)
  - Enuresis [Recovered/Resolved]
  - Anxiety [Recovering/Resolving]
